FAERS Safety Report 8699696 (Version 2)
Quarter: 2014Q3

REPORT INFORMATION
  Report Type: Spontaneous
  Country: US (occurrence: US)
  Receive Date: 20120802
  Receipt Date: 20140725
  Transmission Date: 20150326
  Serious: Yes (Death, Hospitalization)
  Sender: FDA-Public Use
  Company Number: US-GLAXOSMITHKLINE-A0987802A

PATIENT
  Sex: Female

DRUGS (1)
  1. AVANDIA [Suspect]
     Active Substance: ROSIGLITAZONE MALEATE
     Indication: DIABETES MELLITUS
     Route: 048
     Dates: start: 200011, end: 200603

REACTIONS (5)
  - Coronary artery disease [Unknown]
  - Sudden cardiac death [Fatal]
  - Myocardial ischaemia [Unknown]
  - Myocardial infarction [Fatal]
  - Cardiogenic shock [Fatal]
